FAERS Safety Report 8174726 (Version 6)
Quarter: 2012Q4

REPORT INFORMATION
  Report Type: 
  Country: JP (occurrence: JP)
  Receive Date: 20111011
  Receipt Date: 20121002
  Transmission Date: 20130627
  Serious: Yes (Hospitalization, Other)
  Sender: FDA-Public Use
  Company Number: JP-AMGEN-JPNSP2011044840

PATIENT
  Age: 60 Year
  Sex: Female
  Weight: 54 kg

DRUGS (14)
  1. ENBREL [Suspect]
     Indication: RHEUMATOID ARTHRITIS
     Dosage: 25 mg, 2x/week
     Route: 058
     Dates: start: 20101122, end: 20110823
  2. RHEUMATREX /00113802/ [Concomitant]
     Indication: RHEUMATOID ARTHRITIS
     Dosage: 8 mg, qwk
     Route: 048
  3. FOLIAMIN [Concomitant]
     Indication: PROPHYLAXIS
     Dosage: 5 mg, weekly
     Route: 048
  4. ISCOTIN                            /00030201/ [Concomitant]
     Indication: ANTIBIOTIC PROPHYLAXIS
     Dosage: 300 mg, 1x/day
     Route: 048
  5. PYDOXAL [Concomitant]
     Indication: PROPHYLAXIS
     Dosage: 30 mg, 1x/day
     Route: 048
  6. PREDNISOLONE [Concomitant]
     Indication: RHEUMATOID ARTHRITIS
     Dosage: 3 mg once daily in morning
     Route: 048
  7. PREDNISOLONE [Concomitant]
     Dosage: 3 mg, 1x/day
     Route: 048
  8. EVISTA [Concomitant]
     Indication: OSTEOPOROSIS
     Dosage: 60 mg, 1x/day
     Route: 048
  9. BAKTAR [Concomitant]
     Indication: PROPHYLAXIS
     Dosage: 1 DF, 2x/week
     Route: 048
  10. EVOXAC [Concomitant]
     Indication: SJOGREN^S SYNDROME
     Dosage: 30 mg, 2x/day
     Route: 048
  11. FAMOTIDINE [Concomitant]
     Indication: GASTRITIS PROPHYLAXIS
     Dosage: 10 mg, 2x/day
     Route: 048
  12. VOLTAREN                           /00372302/ [Concomitant]
     Indication: RHEUMATOID ARTHRITIS
     Dosage: UNK
     Dates: start: 1991
  13. VOLTAREN                           /00372302/ [Concomitant]
     Dosage: 12.5 mg, as needed
     Route: 054
  14. MAGMITT [Concomitant]
     Indication: CONSTIPATION
     Dosage: 250 mg, 3x/day
     Route: 048

REACTIONS (1)
  - Organising pneumonia [Recovered/Resolved]
